FAERS Safety Report 4882460-5 (Version None)
Quarter: 2006Q1

REPORT INFORMATION
  Report Type: 
  Country: None (occurrence: None)
  Receive Date: 20060113
  Receipt Date: 20060104
  Transmission Date: 20060701
  Serious: Yes (Life-Threatening, Hospitalization, Other)
  Sender: FDA-Public Use
  Company Number: 2006005073

PATIENT
  Age: 78 Year
  Sex: Male

DRUGS (10)
  1. INSPRA [Suspect]
     Indication: CARDIAC FAILURE CONGESTIVE
     Dosage: 25 MG (25 MG, EVERY DAY)
     Dates: start: 20051201
  2. AMIODARONE HCL [Suspect]
     Indication: ARRHYTHMIA
     Dates: start: 20051201
  3. COREG [Concomitant]
  4. LASIX [Concomitant]
  5. PRAVACHOL [Concomitant]
  6. LISIINOPRIL (LISINOPRIL) [Concomitant]
  7. DILTIAZEM [Concomitant]
  8. POTASSIUM (POTASSIUM) [Concomitant]
  9. SYNTHROID [Concomitant]
  10. INSULIN [Concomitant]

REACTIONS (1)
  - BLOOD PRESSURE DECREASED [None]
